FAERS Safety Report 5500967-4 (Version None)
Quarter: 2007Q4

REPORT INFORMATION
  Report Type: 
  Country: None (occurrence: None)
  Receive Date: 20071029
  Receipt Date: 20071018
  Transmission Date: 20080405
  Serious: Yes (Hospitalization, Other)
  Sender: FDA-Public Use
  Company Number: PHBS2007JP17000

PATIENT
  Age: 68 Year
  Sex: Female

DRUGS (1)
  1. DICLOFENAC SODIUM [Suspect]
     Indication: SPINAL CORD PARALYSIS
     Route: 054

REACTIONS (5)
  - ACUTE ABDOMEN [None]
  - ENTERITIS [None]
  - GASTROINTESTINAL EROSION [None]
  - ILEUS [None]
  - SMALL INTESTINE ULCER [None]
